FAERS Safety Report 23111547 (Version 1)
Quarter: 2023Q4

REPORT INFORMATION
  Report Type: Spontaneous
  Country: GR (occurrence: GR)
  Receive Date: 20231026
  Receipt Date: 20231026
  Transmission Date: 20240110
  Serious: Yes (Other)
  Sender: FDA-Public Use
  Company Number: GR-ROCHE-3434587

PATIENT
  Age: 31 Year
  Sex: Male

DRUGS (2)
  1. DEXAMETHASONE [Suspect]
     Active Substance: DEXAMETHASONE
     Indication: Product used for unknown indication
     Route: 042
  2. OCRELIZUMAB [Suspect]
     Active Substance: OCRELIZUMAB
     Indication: Multiple sclerosis
     Dosage: INTRAVENOUS INFUSION
     Route: 042

REACTIONS (8)
  - Hemiparesis [Recovered/Resolved]
  - Hemianopia [Unknown]
  - Lymphopenia [Unknown]
  - Seizure [Unknown]
  - Ataxia [Recovered/Resolved]
  - Agnosia [Unknown]
  - Confusional state [Unknown]
  - Muscular weakness [Unknown]
